FAERS Safety Report 6225846-9 (Version None)
Quarter: 2009Q2

REPORT INFORMATION
  Report Type: 
  Country: None (occurrence: None)
  Receive Date: 20090612
  Receipt Date: 20090504
  Transmission Date: 20091009
  Serious: No
  Sender: FDA-Public Use
  Company Number: US-ABBOTT-09P-163-0571281-00

PATIENT
  Sex: Male
  Weight: 82.628 kg

DRUGS (3)
  1. HUMIRA [Suspect]
     Indication: PSORIATIC ARTHROPATHY
     Dosage: LOADING DOSE
     Route: 058
     Dates: start: 20090427
  2. ANTI-ANXTIETY MEDICATION [Concomitant]
     Indication: ANXIETY
  3. KLONOPIN [Concomitant]
     Indication: DRUG USE FOR UNKNOWN INDICATION

REACTIONS (4)
  - APHASIA [None]
  - DYSPHASIA [None]
  - FEELING ABNORMAL [None]
  - HEADACHE [None]
